FAERS Safety Report 8254901-7 (Version None)
Quarter: 2012Q1

REPORT INFORMATION
  Report Type: 
  Country: None (occurrence: None)
  Receive Date: 20120322
  Receipt Date: 20120113
  Transmission Date: 20120608
  Serious: Yes (Death, Hospitalization)
  Sender: FDA-Public Use
  Company Number: UTC-014684

PATIENT
  Age: 49 Year
  Sex: Male
  Weight: 70.4 kg

DRUGS (4)
  1. TRACLEER [Concomitant]
  2. TYVASO [Suspect]
     Indication: PULMONARY HYPERTENSION
     Dosage: 216 MCG (54 MCG, 4 IN 1 D), INHALATION
     Route: 055
     Dates: start: 20110711
  3. DIURETICS (DIURETICS) [Concomitant]
  4. REVATIO [Concomitant]

REACTIONS (2)
  - DYSPNOEA [None]
  - CARDIAC ARREST [None]
